FAERS Safety Report 10030514 (Version 2)
Quarter: 2014Q1

REPORT INFORMATION
  Report Type: Spontaneous
  Country: US (occurrence: US)
  Receive Date: 20140323
  Receipt Date: 20140323
  Transmission Date: 20141002
  Serious: No
  Sender: FDA-Public Use
  Company Number: US-ALLERGAN-1317685US

PATIENT
  Age: 60 Year
  Sex: Female

DRUGS (6)
  1. LATISSE 0.03% [Suspect]
     Indication: GROWTH OF EYELASHES
     Dosage: 2 UNK, QHS
     Route: 061
     Dates: start: 20131015
  2. LATISSE 0.03% [Suspect]
     Dosage: UNK
     Route: 061
  3. ARTIFICIAL TEARS                   /00445101/ [Concomitant]
     Indication: DRY EYE
     Dosage: UNK
     Route: 047
  4. FLONASE [Concomitant]
     Indication: HYPERSENSITIVITY
     Dosage: UNK UNK, QD
  5. CLARITIN                           /00413701/ [Concomitant]
     Indication: HYPERSENSITIVITY
     Dosage: UNK UNK, QAM
     Route: 048
  6. BONIVA [Concomitant]
     Indication: OSTEOPOROSIS
     Dosage: UNK UNK, Q MONTH

REACTIONS (2)
  - Wrong technique in drug usage process [Unknown]
  - Drug ineffective [Unknown]
